FAERS Safety Report 6413371-1 (Version None)
Quarter: 2009Q4

REPORT INFORMATION
  Report Type: 
  Country: None (occurrence: None)
  Receive Date: 20091026
  Receipt Date: 20091022
  Transmission Date: 20100525
  Serious: Yes (Hospitalization)
  Sender: FDA-Public Use
  Company Number: NL-BRISTOL-MYERS SQUIBB COMPANY-14765564

PATIENT
  Age: 53 Year
  Sex: Female
  Weight: 58 kg

DRUGS (11)
  1. CETUXIMAB [Suspect]
     Indication: HEAD AND NECK CANCER
     Dosage: ALSO GIVEN 420MG/WEEK.
     Route: 042
     Dates: start: 20090429, end: 20090528
  2. CISPLATIN [Suspect]
     Indication: HEAD AND NECK CANCER
     Dosage: TOTAL DOSE-1300 MG
     Route: 042
     Dates: start: 20090429, end: 20090703
  3. CARBOPLATIN [Suspect]
     Indication: HEAD AND NECK CANCER
     Dosage: AUC; RECENT INFUSION - 24AUG09
     Route: 042
     Dates: start: 20090803
  4. DOCETAXEL [Suspect]
     Indication: HEAD AND NECK CANCER
     Route: 042
     Dates: start: 20090429, end: 20090703
  5. FLUOROURACIL [Suspect]
     Indication: HEAD AND NECK CANCER
     Route: 042
     Dates: start: 20090429, end: 20090707
  6. RADIOTHERAPY [Suspect]
     Indication: HEAD AND NECK CANCER
     Dosage: RECENT INFUSION - 28AUG09
     Dates: start: 20090803
  7. PARACETAMOL [Concomitant]
     Indication: PAIN
     Route: 054
  8. METOCLOPRAMIDE [Concomitant]
     Indication: PROPHYLAXIS
     Route: 048
     Dates: start: 20090502
  9. PANTOPRAZOLE SODIUM [Concomitant]
     Indication: PROPHYLAXIS
     Route: 048
     Dates: start: 20090503
  10. LORAZEPAM [Concomitant]
     Indication: PROPHYLAXIS
     Route: 048
  11. FENTANYL-100 [Concomitant]
     Indication: PAIN
     Route: 062
     Dates: start: 20090501

REACTIONS (3)
  - CHILLS [None]
  - MUCOSAL INFLAMMATION [None]
  - PYREXIA [None]
